FAERS Safety Report 9522043 (Version 2)
Quarter: 2013Q3

REPORT INFORMATION
  Report Type: Report from Study
  Country: US (occurrence: US)
  Receive Date: 20130913
  Receipt Date: 20130913
  Transmission Date: 20140515
  Serious: Yes (Other)
  Sender: FDA-Public Use
  Company Number: US-ROCHE-1257792

PATIENT
  Age: 66 Year
  Sex: Female
  Weight: 59.02 kg

DRUGS (2)
  1. RITUXAN [Suspect]
     Indication: CHRONIC LYMPHOCYTIC LEUKAEMIA
     Route: 042
     Dates: start: 20130401, end: 20130617
  2. BENDAMUSTINE [Suspect]
     Indication: CHRONIC LYMPHOCYTIC LEUKAEMIA
     Route: 042
     Dates: start: 201304, end: 20130716

REACTIONS (10)
  - Oral herpes [Recovered/Resolved]
  - Chills [Recovered/Resolved]
  - Papule [Not Recovered/Not Resolved]
  - Pyrexia [Recovered/Resolved]
  - Stomatitis [Not Recovered/Not Resolved]
  - Pruritus [Not Recovered/Not Resolved]
  - Chills [Not Recovered/Not Resolved]
  - Skin mass [Not Recovered/Not Resolved]
  - Tremor [Not Recovered/Not Resolved]
  - Biopsy skin [Not Recovered/Not Resolved]
